FAERS Safety Report 5581527-6 (Version None)
Quarter: 2008Q1

REPORT INFORMATION
  Report Type: 
  Country: None (occurrence: None)
  Receive Date: 20080104
  Receipt Date: 20070410
  Transmission Date: 20080703
  Serious: Yes (Other)
  Sender: FDA-Public Use
  Company Number: US-ASTRAZENECA-2007UW02156

PATIENT
  Age: 15591 Day
  Sex: Male
  Weight: 104.5 kg

DRUGS (4)
  1. SEROQUEL [Suspect]
     Indication: BIPOLAR DISORDER
     Dosage: 25-100 MG
     Route: 048
     Dates: start: 19990916, end: 20060301
  2. RISPERDAL [Concomitant]
     Dates: start: 19990101
  3. RISPERDAL [Concomitant]
     Dates: start: 20031001, end: 20031201
  4. ZYPREXA [Concomitant]
     Dates: start: 20030901, end: 20031001

REACTIONS (3)
  - BLOOD CHOLESTEROL INCREASED [None]
  - CHOLECYSTECTOMY [None]
  - TYPE 2 DIABETES MELLITUS [None]
